FAERS Safety Report 6477902-8 (Version None)
Quarter: 2009Q4

REPORT INFORMATION
  Report Type: 
  Country: None (occurrence: None)
  Receive Date: 20091207
  Receipt Date: 20091106
  Transmission Date: 20100525
  Serious: No
  Sender: FDA-Public Use
  Company Number: US-BAYER-200916675BCC

PATIENT
  Age: 63 Year
  Sex: Female
  Weight: 73 kg

DRUGS (7)
  1. ALEVE (CAPLET) [Suspect]
     Indication: HEADACHE
     Dosage: TOTAL DAILY DOSE: 220 MG  UNIT DOSE: 220 MG
     Route: 048
     Dates: start: 20090501, end: 20090101
  2. CLARITON D [Concomitant]
     Dosage: TOOK OCCASIONALLY
     Route: 065
  3. SUDAFED 12 HOUR [Concomitant]
     Dosage: TOOK OCCASIONALLY
     Route: 065
  4. EXCEDRIN (MIGRAINE) [Concomitant]
     Dosage: TOOK OCCASIONALLY
     Route: 065
  5. TRAMADOL HCL [Concomitant]
     Route: 065
  6. ALLEREST [Concomitant]
     Dosage: TOOK OCCASIONALLY
     Route: 065
  7. GENERIC ANTIHISTAMINE [Concomitant]
     Route: 065

REACTIONS (1)
  - DYSPEPSIA [None]
